FAERS Safety Report 6136091-X (Version None)
Quarter: 2009Q1

REPORT INFORMATION
  Report Type: 
  Country: None (occurrence: None)
  Receive Date: 20090330
  Receipt Date: 20090320
  Transmission Date: 20090719
  Serious: Yes (Hospitalization)
  Sender: FDA-Public Use
  Company Number: US-AMGEN-QUU336646

PATIENT
  Sex: Male
  Weight: 73.5 kg

DRUGS (13)
  1. ENBREL [Suspect]
     Indication: RHEUMATOID ARTHRITIS
     Route: 058
     Dates: start: 19980101
  2. ARAVA [Concomitant]
  3. PREDNISONE [Concomitant]
  4. INSULIN [Concomitant]
  5. TERBUTALINE SULFATE [Concomitant]
  6. LASIX [Concomitant]
  7. RAMIPRIL [Concomitant]
  8. ADVAIR HFA [Concomitant]
  9. FLOMAX [Concomitant]
  10. THEOPHYLLINE [Concomitant]
  11. VITAMIN E [Concomitant]
  12. ASACOL [Concomitant]
  13. UNSPECIFIED MEDICATION [Concomitant]

REACTIONS (11)
  - ABDOMINAL HERNIA [None]
  - BONE PAIN [None]
  - CATARACT [None]
  - DIARRHOEA [None]
  - NASOPHARYNGITIS [None]
  - OEDEMA PERIPHERAL [None]
  - PAIN IN EXTREMITY [None]
  - PNEUMONIA [None]
  - POST PROCEDURAL FISTULA [None]
  - SINUSITIS [None]
  - VOMITING [None]
